FAERS Safety Report 11743657 (Version 1)
Quarter: 2015Q4

REPORT INFORMATION
  Report Type: Spontaneous
  Country: JP (occurrence: JP)
  Receive Date: 20151116
  Receipt Date: 20151116
  Transmission Date: 20160304
  Serious: Yes (Death)
  Sender: FDA-Public Use
  Company Number: PHJP2015JP020050

PATIENT
  Sex: Male

DRUGS (1)
  1. EXELON PATCH [Suspect]
     Active Substance: RIVASTIGMINE
     Indication: DEMENTIA ALZHEIMER^S TYPE
     Dosage: 13.5 MG (PATCH 7.5, 6.9 MG/24H), QD (TRANSDERMAL)
     Route: 062

REACTIONS (2)
  - Lung neoplasm malignant [Fatal]
  - Concomitant disease progression [Fatal]
